FAERS Safety Report 4333007-3 (Version None)
Quarter: 2004Q2

REPORT INFORMATION
  Report Type: 
  Country: None (occurrence: None)
  Receive Date: 20040401
  Receipt Date: 20040317
  Transmission Date: 20050107
  Serious: Yes (Other)
  Sender: FDA-Public Use
  Company Number: M04-341-040

PATIENT
  Age: 67 Year
  Sex: Male
  Weight: 95 kg

DRUGS (10)
  1. VELCADE [Suspect]
     Indication: MULTIPLE MYELOMA
     Dosage: 3.0 MG (1.3 MG/M2): INTRAVENOUS BOLUS
     Route: 040
     Dates: start: 20030801, end: 20040123
  2. ACYCLOVIR [Concomitant]
  3. AMBIEN [Concomitant]
  4. BACTRIM [Concomitant]
  5. DEXAMETHASONE [Concomitant]
  6. IRON [Concomitant]
  7. MUTIVITAMINS [Concomitant]
  8. PERI-COLACE [Concomitant]
  9. PROCHLORPERAZINE [Concomitant]
  10. RANITIDINE [Concomitant]

REACTIONS (11)
  - AUTONOMIC NEUROPATHY [None]
  - DECREASED APPETITE [None]
  - DEHYDRATION [None]
  - DIZZINESS [None]
  - EMBOLISM [None]
  - FALL [None]
  - NERVOUS SYSTEM DISORDER [None]
  - NEUROPATHY PERIPHERAL [None]
  - ORTHOSTATIC HYPOTENSION [None]
  - SPINAL CORD COMPRESSION [None]
  - WEIGHT DECREASED [None]
